FAERS Safety Report 5063114-1 (Version None)
Quarter: 2006Q3

REPORT INFORMATION
  Report Type: 
  Country: None (occurrence: None)
  Receive Date: 20060725
  Receipt Date: 20060725
  Transmission Date: 20061208
  Serious: Yes (Other)
  Sender: FDA-Public Use
  Company Number: None

PATIENT
  Age: 42 Year
  Sex: Male
  Weight: 69 kg

DRUGS (2)
  1. RISPERIDONE [Suspect]
     Indication: BRAIN DAMAGE
     Dosage: RISPERIDONE  0.5MG HS PO
     Route: 048
     Dates: start: 20060714, end: 20060717
  2. . [Concomitant]

REACTIONS (2)
  - HYPERGLYCAEMIC HYPEROSMOLAR NONKETOTIC SYNDROME [None]
  - MENTAL STATUS CHANGES [None]
